FAERS Safety Report 13591958 (Version 4)
Quarter: 2017Q3

REPORT INFORMATION
  Report Type: Spontaneous
  Country: LS (occurrence: LS)
  Receive Date: 20170530
  Receipt Date: 20170724
  Transmission Date: 20171127
  Serious: Yes (Death, Hospitalization)
  Sender: FDA-Public Use
  Company Number: LS-JNJFOC-20170521517

PATIENT
  Age: 45 Year
  Sex: Female
  Weight: 47 kg

DRUGS (18)
  1. METRONIDAZOLE. [Interacting]
     Active Substance: METRONIDAZOLE
     Indication: DIARRHOEA
     Route: 048
     Dates: start: 20170524
  2. LEVOFLOXACIN. [Suspect]
     Active Substance: LEVOFLOXACIN
     Indication: TUBERCULOSIS
     Route: 048
     Dates: start: 20161017
  3. THYROXINE [Concomitant]
     Active Substance: LEVOTHYROXINE
     Indication: HYPOTHYROIDISM
     Dosage: DAILY DOSE: 75 (UNITS UNSPECIFIED)
     Route: 048
     Dates: start: 20170419
  4. WARFARIN [Concomitant]
     Active Substance: WARFARIN
     Indication: DEEP VEIN THROMBOSIS
     Dosage: DAILY DOSE: 5 (UNITS UNSPECIFIED)
     Route: 048
     Dates: start: 20161216, end: 20170519
  5. LAMIVUDINE. [Concomitant]
     Active Substance: LAMIVUDINE
     Indication: HIV INFECTION
     Route: 048
     Dates: start: 2007, end: 20170523
  6. SIRTURO [Suspect]
     Active Substance: BEDAQUILINE FUMARATE
     Indication: TUBERCULOSIS
     Route: 048
     Dates: start: 20161231
  7. SIRTURO [Suspect]
     Active Substance: BEDAQUILINE FUMARATE
     Indication: TUBERCULOSIS
     Route: 048
  8. KALETRA [Interacting]
     Active Substance: LOPINAVIR\RITONAVIR
     Indication: HIV INFECTION
     Dosage: 400/100 MG TWICE A DAY
     Route: 048
     Dates: start: 20170522
  9. PYRAZINAMIDE. [Suspect]
     Active Substance: PYRAZINAMIDE
     Indication: TUBERCULOSIS
     Route: 048
     Dates: start: 20161017
  10. PROTHIONAMIDE [Suspect]
     Active Substance: PROTIONAMIDE
     Indication: TUBERCULOSIS
     Route: 048
     Dates: start: 20161017
  11. ISONIAZID. [Suspect]
     Active Substance: ISONIAZID
     Indication: TUBERCULOSIS
     Route: 048
     Dates: start: 20161017
  12. CYCLOSERINE. [Suspect]
     Active Substance: CYCLOSERINE
     Indication: TUBERCULOSIS
     Route: 048
     Dates: start: 20170419
  13. METOCLOPRAMIDE. [Concomitant]
     Active Substance: METOCLOPRAMIDE
     Dosage: DAILY DOSE: 20 (UNITS UNSPECIFIED)
     Route: 048
     Dates: start: 20170419
  14. OMEPRAZOLE. [Concomitant]
     Active Substance: OMEPRAZOLE
     Dosage: DAILY DOSE: 20 (UNITS UNSPECIFIED)
     Route: 048
     Dates: start: 20170419
  15. ABACAVIR. [Concomitant]
     Active Substance: ABACAVIR
     Indication: HIV INFECTION
     Route: 048
     Dates: start: 2007, end: 20170523
  16. EFAVIRENZ [Concomitant]
     Active Substance: EFAVIRENZ
     Indication: HIV INFECTION
     Route: 065
     Dates: start: 201610
  17. FLUCONAZOLE. [Interacting]
     Active Substance: FLUCONAZOLE
     Indication: OESOPHAGEAL CANDIDIASIS
     Route: 048
     Dates: start: 20170524
  18. NEVIRAPINE. [Concomitant]
     Active Substance: NEVIRAPINE
     Indication: HIV INFECTION
     Route: 048
     Dates: start: 2007, end: 20170523

REACTIONS (4)
  - Sudden death [Fatal]
  - Drug interaction [Unknown]
  - Gastroenteritis [Recovering/Resolving]
  - AIDS related complication [Unknown]

NARRATIVE: CASE EVENT DATE: 20170514
